FAERS Safety Report 7042764-7 (Version None)
Quarter: 2010Q4

REPORT INFORMATION
  Report Type: 
  Country: None (occurrence: None)
  Receive Date: 20101013
  Receipt Date: 20100514
  Transmission Date: 20110411
  Serious: No
  Sender: FDA-Public Use
  Company Number: US-ASTRAZENECA-2010SE22152

PATIENT
  Age: 71 Year
  Sex: Female

DRUGS (3)
  1. SYMBICORT [Suspect]
     Indication: ASTHMA
     Dosage: TOTAL DAILY DOSAGE 320 MCG, BID
     Route: 055
     Dates: start: 20100509
  2. XANAX [Concomitant]
  3. BUSPAR [Concomitant]

REACTIONS (1)
  - DYSPNOEA [None]
